FAERS Safety Report 18452982 (Version 1)
Quarter: 2020Q4

REPORT INFORMATION
  Report Type: Spontaneous
  Country: CN (occurrence: CN)
  Receive Date: 20201102
  Receipt Date: 20201102
  Transmission Date: 20210114
  Serious: Yes (Other)
  Sender: FDA-Public Use
  Company Number: CN-PFIZER INC-2020421680

PATIENT
  Age: 33 Year
  Sex: Male
  Weight: 69 kg

DRUGS (2)
  1. BO LI GAO [Suspect]
     Active Substance: CANDESARTAN CILEXETIL
     Indication: SYMPTOMATIC TREATMENT
     Dosage: 8 MG, 1X/DAY
     Route: 048
     Dates: start: 20201022, end: 20201023
  2. NORVASC [Suspect]
     Active Substance: AMLODIPINE BESYLATE
     Indication: HYPERTENSION
     Dosage: 5 MG, 1X/DAY
     Route: 048
     Dates: start: 20201022, end: 20201023

REACTIONS (2)
  - Conjunctival haemorrhage [Recovering/Resolving]
  - Ocular discomfort [Recovering/Resolving]

NARRATIVE: CASE EVENT DATE: 20201023
